FAERS Safety Report 15956095 (Version 1)
Quarter: 2019Q1

REPORT INFORMATION
  Report Type: Spontaneous
  Country: US (occurrence: US)
  Receive Date: 20190122
  Receipt Date: 20190122
  Transmission Date: 20190417
  Serious: Yes (Disabling, Other)
  Sender: FDA-Public Use
  Company Number: None

PATIENT
  Age: 42 Year
  Sex: Female
  Weight: 79.2 kg

DRUGS (1)
  1. LORSARTAN [Suspect]
     Active Substance: LOSARTAN
     Indication: HYPERTENSION
     Dosage: ?          QUANTITY:30 TABLET(S);?
     Route: 048
     Dates: start: 20180420, end: 20181012

REACTIONS (5)
  - Palpitations [None]
  - Dyspnoea [None]
  - Swelling [None]
  - Headache [None]
  - Swollen tongue [None]

NARRATIVE: CASE EVENT DATE: 20180510
